FAERS Safety Report 5839366-4 (Version None)
Quarter: 2008Q3

REPORT INFORMATION
  Report Type: 
  Country: None (occurrence: None)
  Receive Date: 20080806
  Receipt Date: 20080721
  Transmission Date: 20090109
  Serious: Yes (Other)
  Sender: FDA-Public Use
  Company Number: 2008S1012792

PATIENT
  Age: 12 Year
  Sex: Male

DRUGS (3)
  1. CYTARABINE (CYTARABINE) 100 MG/M**2 [Suspect]
     Indication: ACUTE MYELOID LEUKAEMIA
     Dosage: 100 MG/M**2, DAILY
  2. DAUNORUBICIN (DAUNORUBICIN) 80 MG/M**2 [Suspect]
     Indication: ACUTE MYELOID LEUKAEMIA
     Dosage: 80 MG/M**2; DAILY
  3. ETOPOSIDE (ETOPOSIDE) 150 MG/M**2 [Suspect]
     Indication: ACUTE MYELOID LEUKAEMIA
     Dosage: 150 MG/M**2

REACTIONS (2)
  - APPENDICITIS [None]
  - FEBRILE NEUTROPENIA [None]
